FAERS Safety Report 20910538 (Version 1)
Quarter: 2022Q2

REPORT INFORMATION
  Report Type: Spontaneous
  Country: BG (occurrence: BG)
  Receive Date: 20220603
  Receipt Date: 20220603
  Transmission Date: 20220721
  Serious: Yes (Other)
  Sender: FDA-Public Use
  Company Number: BG-ALVOGEN-2022-ALVOGEN-120485

PATIENT
  Age: 59 Year
  Sex: Female

DRUGS (2)
  1. LISINOPRIL [Suspect]
     Active Substance: LISINOPRIL
     Indication: Chronic kidney disease
     Route: 065
     Dates: start: 20220511
  2. SODIUM ZIRCONIUM CYCLOSILICATE [Suspect]
     Active Substance: SODIUM ZIRCONIUM CYCLOSILICATE
     Indication: Chronic kidney disease
     Route: 048
     Dates: start: 20220509, end: 20220522

REACTIONS (1)
  - Intervertebral disc injury [Recovered/Resolved]

NARRATIVE: CASE EVENT DATE: 20220516
